FAERS Safety Report 8572958-0 (Version None)
Quarter: 2012Q3

REPORT INFORMATION
  Report Type: 
  Country: None (occurrence: None)
  Receive Date: 20120806
  Receipt Date: 20120327
  Transmission Date: 20120928
  Serious: No
  Sender: FDA-Public Use
  Company Number: US-009507513-2012SP009779

PATIENT

DRUGS (1)
  1. COPPERTONE ULTRAGUARD LOTION SPF 30 [Suspect]
     Indication: PROPHYLAXIS AGAINST SOLAR RADIATION
     Dosage: UNK UNK, ONCE
     Route: 061
     Dates: start: 20120211

REACTIONS (3)
  - PAIN [None]
  - RASH ERYTHEMATOUS [None]
  - RASH PRURITIC [None]
